FAERS Safety Report 8729229 (Version 2)
Quarter: 2013Q3

REPORT INFORMATION
  Report Type: Spontaneous
  Country: US (occurrence: US)
  Receive Date: 20120817
  Receipt Date: 20130823
  Transmission Date: 20140515
  Serious: Yes (Other)
  Sender: FDA-Public Use
  Company Number: US-BRISTOL-MYERS SQUIBB COMPANY-16588162

PATIENT
  Age: 55 Year
  Sex: Male

DRUGS (9)
  1. SPRYCEL (CML) TABS 100 MG [Suspect]
     Indication: CHRONIC MYELOMONOCYTIC LEUKAEMIA
     Dosage: ALSO ON 10OCT2009
     Route: 048
     Dates: start: 20090910
  2. ESCITALOPRAM OXALATE [Concomitant]
     Indication: ADJUSTMENT DISORDER WITH DEPRESSED MOOD
     Dosage: 20MG ORAL TABLET
     Route: 048
     Dates: start: 20100120
  3. ZYRTEC [Concomitant]
     Dosage: ALLERGY TO 10MG ORAL TABS
     Route: 048
     Dates: start: 20110822
  4. MULTIVITAMIN [Concomitant]
     Dosage: 1DF:1 TABS
  5. VITAMIN C [Concomitant]
     Dosage: 1DF:1TABS(CHEW AND SWALLOW)
  6. LUNESTA [Concomitant]
     Indication: INSOMNIA
     Dosage: 2MG ORAL TABS?1DF:1 TABS AT BED TIME
     Route: 048
     Dates: start: 20110822
  7. VENTOLIN INHALER [Concomitant]
     Indication: BRONCHITIS
     Dosage: 1DF:1-2 PUFFS EVERY 4-6 HRS AS PRN AND AS DIRECTED?VENTOLIN HFA 108(90 BASE) MCG/ACT AEROSOL SOLN
     Route: 055
     Dates: start: 20110415
  8. GABAPENTIN [Concomitant]
     Indication: CHRONIC MYELOMONOCYTIC LEUKAEMIA
     Dosage: 1DF:2 TABS
     Route: 048
     Dates: start: 20090827
  9. HYDROCODONE + ACETAMINOPHEN [Concomitant]
     Indication: PAIN
     Dosage: TAKEN 1 Q 8HRS
     Route: 048
     Dates: start: 20090827

REACTIONS (5)
  - Oral infection [Recovering/Resolving]
  - Toothache [Recovering/Resolving]
  - Rhinorrhoea [Recovering/Resolving]
  - Erythema [Unknown]
  - Oedema [Unknown]
